FAERS Safety Report 4818142-5 (Version None)
Quarter: 2005Q4

REPORT INFORMATION
  Report Type: 
  Country: None (occurrence: None)
  Receive Date: 20051102
  Receipt Date: 20051025
  Transmission Date: 20060501
  Serious: Yes (Death)
  Sender: FDA-Public Use
  Company Number: DE-SANOFI-SYNTHELABO-A01200507464

PATIENT
  Age: 73 Year
  Sex: Male

DRUGS (2)
  1. ELIGARD [Suspect]
     Indication: PROSTATE CANCER
     Route: 058
     Dates: start: 20030601
  2. ELIGARD [Suspect]
     Route: 058
     Dates: start: 20050301

REACTIONS (5)
  - AMYOTROPHIC LATERAL SCLEROSIS [None]
  - MUSCLE ATROPHY [None]
  - RESPIRATORY DISORDER [None]
  - SPEECH DISORDER [None]
  - TONGUE ATROPHY [None]
